FAERS Safety Report 24436409 (Version 1)
Quarter: 2024Q4

REPORT INFORMATION
  Report Type: Spontaneous
  Country: SE (occurrence: SE)
  Receive Date: 20241015
  Receipt Date: 20241015
  Transmission Date: 20250115
  Serious: Yes (Disabling)
  Sender: ACCORD
  Company Number: None

PATIENT
  Age: 37 Year
  Sex: Female
  Weight: 74 kg

DRUGS (2)
  1. TACROLIMUS [Suspect]
     Active Substance: TACROLIMUS
     Indication: Eczema
     Dosage: 2 TIMES PER DAY FOR 2 WEEKS. STRENGTH: 1MG, 1.02MG
     Dates: start: 20211206, end: 20211220
  2. TACROLIMUS [Suspect]
     Active Substance: TACROLIMUS
     Indication: Eczema
     Dosage: 2 DAYS PER WEEK THEN DURING MAINTENANCE TREATMENT. STRENGTH: 1MG, 1.02 MG
     Dates: start: 20211221, end: 20220502

REACTIONS (2)
  - Eye pruritus [Not Recovered/Not Resolved]
  - Rosacea [Not Recovered/Not Resolved]
